FAERS Safety Report 4792274-2 (Version None)
Quarter: 2005Q4

REPORT INFORMATION
  Report Type: 
  Country: None (occurrence: None)
  Receive Date: 20051007
  Receipt Date: 20050929
  Transmission Date: 20060501
  Serious: Yes (Death, Hospitalization, Other)
  Sender: FDA-Public Use
  Company Number: US-MERCK-0510USA00317

PATIENT
  Sex: Female
  Weight: 111 kg

DRUGS (8)
  1. VIOXX [Suspect]
     Indication: ARTHRITIS
     Route: 048
     Dates: start: 19990902
  2. COUMADIN [Concomitant]
     Route: 065
  3. ACTOS [Concomitant]
     Route: 065
  4. ZESTRIL [Concomitant]
     Route: 065
  5. HUMULIN [Concomitant]
     Route: 065
  6. GLYSET [Concomitant]
     Route: 065
  7. FLONASE [Concomitant]
     Route: 065
  8. [THERAPY UNSPECIFIED] [Concomitant]
     Route: 065

REACTIONS (3)
  - CEREBROVASCULAR ACCIDENT [None]
  - DEATH [None]
  - MYOCARDIAL INFARCTION [None]
